FAERS Safety Report 13973685 (Version 1)
Quarter: 2017Q3

REPORT INFORMATION
  Report Type: Spontaneous
  Country: US (occurrence: US)
  Receive Date: 20170915
  Receipt Date: 20170915
  Transmission Date: 20171128
  Serious: Yes (Hospitalization, Other)
  Sender: FDA-Public Use
  Company Number: US-COVIS PHARMA B.V.-2017COV00335

PATIENT
  Age: 73 Year
  Sex: Male
  Weight: 93.88 kg

DRUGS (22)
  1. FLU VACCINE [Concomitant]
     Active Substance: INFLUENZA VIRUS VACCINE
     Dosage: UNK
     Dates: start: 2016, end: 2016
  2. OMEPRAZOLE MAGNESIUM. [Suspect]
     Active Substance: OMEPRAZOLE MAGNESIUM
     Indication: PROPHYLAXIS OF NAUSEA AND VOMITING
     Dosage: 40 MG, 1X/DAY AT BEDTIME
     Route: 048
     Dates: start: 2016
  3. CITALOPRAM [Concomitant]
     Active Substance: CITALOPRAM HYDROBROMIDE
     Route: 048
  4. CRESTOR [Suspect]
     Active Substance: ROSUVASTATIN CALCIUM
     Indication: BLOOD CHOLESTEROL
     Dosage: UNK, 1X/DAY
     Route: 048
     Dates: start: 2007, end: 201706
  5. MEGARED [Concomitant]
     Dosage: UNK
     Route: 048
     Dates: start: 2005
  6. PLETAL [Concomitant]
     Active Substance: CILOSTAZOL
     Dosage: UNK
     Route: 048
     Dates: start: 2006
  7. GLIMEPIRIDE. [Concomitant]
     Active Substance: GLIMEPIRIDE
     Dosage: UNK
     Route: 048
     Dates: start: 2008
  8. ASPIRIN LOW DOSE [Concomitant]
     Active Substance: ASPIRIN
     Dosage: 1 DOSAGE UNITS, 1X/DAY
     Route: 048
     Dates: start: 2005
  9. NIACIN. [Concomitant]
     Active Substance: NIACIN
     Dosage: UNK
     Route: 048
     Dates: start: 2005
  10. FLUTICASONE PROPIONATE NASAL SPRAY [Concomitant]
     Active Substance: FLUTICASONE PROPIONATE
     Dosage: 1 DOSAGE UNITS, IN EACH NOSTRIL DAILY
     Route: 045
     Dates: start: 2009
  11. CALCITRIOL. [Concomitant]
     Active Substance: CALCITRIOL
     Dosage: UNK
     Route: 048
     Dates: start: 2015
  12. CALCIUM PLUS D3 [Concomitant]
     Dosage: UNK
     Route: 048
     Dates: start: 2005
  13. TUDORZA PRESSAIR [Suspect]
     Active Substance: ACLIDINIUM BROMIDE
     Indication: CHRONIC OBSTRUCTIVE PULMONARY DISEASE
     Dosage: 400 ?G, 2X/DAY
     Route: 055
     Dates: start: 20170524
  14. SYMBICORT [Suspect]
     Active Substance: BUDESONIDE\FORMOTEROL FUMARATE DIHYDRATE
     Indication: CHRONIC OBSTRUCTIVE PULMONARY DISEASE
     Dosage: 2 DOSAGE UNITS, 2X/DAY
     Route: 055
     Dates: start: 20170524
  15. LANTUS SOLOSTAR [Concomitant]
     Active Substance: INSULIN GLARGINE
     Dosage: 32 U, 1X/DAY AT 7PM
     Route: 058
     Dates: start: 2007
  16. IPRATROPIUM BROMIDE NASAL SPRAY [Concomitant]
     Active Substance: IPRATROPIUM BROMIDE
     Dosage: 2 DOSAGE UNITS, IN EACH NOSTRIL DAILY (NOT USED EVERY DAY)
     Route: 045
     Dates: start: 2009
  17. ROSUVASTATIN CALCIUM. [Suspect]
     Active Substance: ROSUVASTATIN CALCIUM
     Indication: BLOOD CHOLESTEROL
     Dosage: 5 MG, 1X/DAY
     Route: 048
     Dates: start: 201706
  18. OPDIVO [Suspect]
     Active Substance: NIVOLUMAB
     Dosage: UNK EVERY 2 WEEKS
     Route: 042
     Dates: start: 201708
  19. TYLENOL NIGHTTIME [Concomitant]
     Dosage: 2 DOSAGE UNITS, 1X/DAY AT BEDTIME
     Route: 048
     Dates: start: 1999
  20. AMLODIPINE [Concomitant]
     Active Substance: AMLODIPINE BESYLATE
     Dosage: UNK
     Route: 048
     Dates: start: 1999
  21. IMODIUM AD [Concomitant]
     Active Substance: LOPERAMIDE HYDROCHLORIDE
     Dosage: UNK
     Route: 048
     Dates: start: 2005
  22. TETANUS INJECTION [Concomitant]

REACTIONS (12)
  - Off label use [Not Recovered/Not Resolved]
  - Dysgeusia [Unknown]
  - Decreased appetite [Unknown]
  - Chronic obstructive pulmonary disease [Not Recovered/Not Resolved]
  - Nerve injury [Not Recovered/Not Resolved]
  - Blood glucose decreased [Unknown]
  - Pneumonia [Recovered/Resolved]
  - Weight decreased [Not Recovered/Not Resolved]
  - Secretion discharge [Not Recovered/Not Resolved]
  - Asthenia [Unknown]
  - Blood glucose fluctuation [Unknown]
  - Tumour flare [Unknown]

NARRATIVE: CASE EVENT DATE: 2016
